FAERS Safety Report 8793077 (Version 2)
Quarter: 2015Q1

REPORT INFORMATION
  Report Type: Report from Study
  Country: US (occurrence: US)
  Receive Date: 20120918
  Receipt Date: 20150313
  Transmission Date: 20150721
  Serious: Yes (Death)
  Sender: FDA-Public Use
  Company Number: US-ROCHE-1123215

PATIENT
  Sex: Female

DRUGS (5)
  1. AVASTIN [Suspect]
     Active Substance: BEVACIZUMAB
     Indication: COLON CANCER
     Route: 065
     Dates: start: 20050127
  2. PROCRIT [Concomitant]
     Active Substance: ERYTHROPOIETIN
     Dosage: 40K
     Route: 065
  3. XELODA [Suspect]
     Active Substance: CAPECITABINE
     Indication: PRODUCT USED FOR UNKNOWN INDICATION
     Route: 065
  4. AVASTIN [Suspect]
     Active Substance: BEVACIZUMAB
     Indication: BREAST CANCER FEMALE
  5. PROCHLORPERAZINE MALEATE. [Concomitant]
     Active Substance: PROCHLORPERAZINE MALEATE
     Route: 048

REACTIONS (15)
  - Portal hypertension [Unknown]
  - Hydronephrosis [Unknown]
  - Metastases to peritoneum [Unknown]
  - Ascites [Unknown]
  - Erythema [Unknown]
  - Colon neoplasm [Unknown]
  - Lymphoedema [Unknown]
  - Oedema peripheral [Unknown]
  - Dry skin [Unknown]
  - Oesophageal disorder [Unknown]
  - Diarrhoea [Unknown]
  - Syncope [Unknown]
  - Generalised oedema [Unknown]
  - Death [Fatal]
  - Osteopenia [Unknown]
